FAERS Safety Report 7015795-0 (Version None)
Quarter: 2010Q3

REPORT INFORMATION
  Report Type: 
  Country: None (occurrence: None)
  Receive Date: 20100927
  Receipt Date: 20100607
  Transmission Date: 20110219
  Serious: No
  Sender: FDA-Public Use
  Company Number: US-ASTRAZENECA-2010SE22640

PATIENT
  Sex: Female

DRUGS (1)
  1. ARIMIDEX [Suspect]
     Route: 048

REACTIONS (6)
  - ASTHENIA [None]
  - BONE PAIN [None]
  - HERPES ZOSTER [None]
  - MIGRAINE [None]
  - PAIN [None]
  - SKIN EXFOLIATION [None]
